FAERS Safety Report 8535460-8 (Version None)
Quarter: 2012Q3

REPORT INFORMATION
  Report Type: 
  Country: None (occurrence: None)
  Receive Date: 20120718
  Receipt Date: 20120718
  Transmission Date: 20120928
  Serious: Yes (Life-Threatening, Hospitalization)
  Sender: FDA-Public Use
  Company Number: None

PATIENT
  Sex: Male

DRUGS (1)
  1. HEPARIN [Suspect]
     Indication: AORTIC ANEURYSM REPAIR
     Dosage: 10 USP UNITS/ML, INTRAVENOUS (NOT OTHERWISE SPECIFIED)
     Route: 042
     Dates: start: 20120221

REACTIONS (5)
  - URINARY INCONTINENCE [None]
  - ANAPHYLACTIC REACTION [None]
  - URINARY RETENTION [None]
  - VENOUS THROMBOSIS [None]
  - THROMBOPHLEBITIS SUPERFICIAL [None]
